FAERS Safety Report 25456866 (Version 1)
Quarter: 2025Q2

REPORT INFORMATION
  Report Type: Spontaneous
  Country: US (occurrence: US)
  Receive Date: 20250619
  Receipt Date: 20250619
  Transmission Date: 20250717
  Serious: No
  Sender: SANOFI AVENTIS
  Company Number: US-SA-2025SA172535

PATIENT
  Age: 39 Year
  Sex: Male

DRUGS (2)
  1. ALPROLIX [Suspect]
     Active Substance: EFTRENONACOG ALFA
     Indication: Factor IX deficiency
     Dosage: 2000 UNIT: ALPROLIX 2105 UNITS/VIAL, 4 VIALS. INFUSE 6272 UNITS (ONEEVIALAL OF 2105 UNITS ALONG WITH
     Route: 042
     Dates: start: 20250402
  2. ALPROLIX [Suspect]
     Active Substance: EFTRENONACOG ALFA
     Indication: Factor IX deficiency
     Dosage: 2000 UNIT: ALPROLIX 2105 UNITS/VIAL, 4 VIALS. INFUSE 6272 UNITS (ONEEVIALAL OF 2105 UNITS ALONG WITH
     Route: 042
     Dates: start: 20250402

REACTIONS (3)
  - Spontaneous haemorrhage [Not Recovered/Not Resolved]
  - Pain [Unknown]
  - Intentional dose omission [Unknown]

NARRATIVE: CASE EVENT DATE: 20250101
